FAERS Safety Report 9152321 (Version 1)
Quarter: 2013Q1

REPORT INFORMATION
  Report Type: Spontaneous
  Country: DE (occurrence: DE)
  Receive Date: 20130308
  Receipt Date: 20130308
  Transmission Date: 20140127
  Serious: Yes (Other)
  Sender: FDA-Public Use
  Company Number: DE-TEVA-390720USA

PATIENT
  Age: 65 Year
  Sex: Male

DRUGS (2)
  1. TREANDA [Suspect]
  2. RITUXIMAB [Suspect]

REACTIONS (1)
  - Demyelination [Unknown]
